FAERS Safety Report 9217330 (Version 12)
Quarter: 2016Q2

REPORT INFORMATION
  Report Type: Report from Study
  Country: FR (occurrence: FR)
  Receive Date: 20130408
  Receipt Date: 20160627
  Transmission Date: 20160815
  Serious: Yes (Hospitalization)
  Sender: FDA-Public Use
  Company Number: FR-ROCHE-1208493

PATIENT
  Age: 70 Year
  Sex: Female
  Weight: 43 kg

DRUGS (5)
  1. DUROGESIC [Concomitant]
     Active Substance: FENTANYL
     Route: 065
     Dates: start: 201212, end: 20130626
  2. LEVOTHYROX [Concomitant]
     Active Substance: LEVOTHYROXINE
  3. DUROGESIC [Concomitant]
     Active Substance: FENTANYL
     Dosage: DOSE: 125 MICROGRAMS PER HOUR
     Route: 065
     Dates: start: 201111, end: 20130626
  4. TRASTUZUMAB EMTANSINE [Suspect]
     Active Substance: ADO-TRASTUZUMAB EMTANSINE
     Indication: HER-2 POSITIVE BREAST CANCER
     Dosage: LAST DOSE PRIOR TO SAE: 21/FEB/2013
     Route: 042
     Dates: start: 20130221
  5. OXYNORM [Concomitant]
     Active Substance: OXYCODONE HYDROCHLORIDE
     Route: 065
     Dates: start: 20130218

REACTIONS (1)
  - Febrile neutropenia [Recovered/Resolved]

NARRATIVE: CASE EVENT DATE: 20130306
